FAERS Safety Report 11403898 (Version 3)
Quarter: 2015Q3

REPORT INFORMATION
  Report Type: Spontaneous
  Country: CN (occurrence: CN)
  Receive Date: 20150821
  Receipt Date: 20150831
  Transmission Date: 20151125
  Serious: Yes (Hospitalization)
  Sender: FDA-Public Use
  Company Number: CN-SA-2015SA124857

PATIENT
  Age: 74 Year
  Sex: Female
  Weight: 35 kg

DRUGS (7)
  1. COAPROVEL [Suspect]
     Active Substance: HYDROCHLOROTHIAZIDE\IRBESARTAN
     Indication: HYPERTENSION
     Dosage: DOSE:3/4 TAB BID
     Route: 048
  2. COAPROVEL [Suspect]
     Active Substance: HYDROCHLOROTHIAZIDE\IRBESARTAN
     Indication: HYPERTENSION
     Dosage: 4/5TAB/QD
     Route: 048
  3. COAPROVEL [Suspect]
     Active Substance: HYDROCHLOROTHIAZIDE\IRBESARTAN
     Indication: HYPERTENSION
     Dosage: DOSE:3/4 TAB/BID
     Route: 048
     Dates: start: 201504, end: 20150711
  4. COAPROVEL [Suspect]
     Active Substance: HYDROCHLOROTHIAZIDE\IRBESARTAN
     Indication: HYPERTENSION
     Dosage: 0.5 TAB/QD-1 TAB/QD-?3/4TAB/QD-3/4 TAB/BID, START DATE :2006 OR 2007
     Route: 048
  5. COAPROVEL [Suspect]
     Active Substance: HYDROCHLOROTHIAZIDE\IRBESARTAN
     Indication: HYPERTENSION
     Dosage: DOSE:3/4 DF
     Route: 048
     Dates: start: 201501
  6. COAPROVEL [Suspect]
     Active Substance: HYDROCHLOROTHIAZIDE\IRBESARTAN
     Indication: HYPERTENSION
     Dosage: DOSE:2/3 DF/QD
     Route: 048
     Dates: start: 20150719
  7. COAPROVEL [Suspect]
     Active Substance: HYDROCHLOROTHIAZIDE\IRBESARTAN
     Indication: HYPERTENSION
     Dosage: DOSE:3/4 TAB BID
     Route: 048
     Dates: start: 20150815

REACTIONS (5)
  - Temperature intolerance [Recovered/Resolved]
  - Chills [Recovered/Resolved]
  - Drug administration error [Unknown]
  - Hypoaesthesia [Recovered/Resolved]
  - Blood pressure increased [Recovered/Resolved]

NARRATIVE: CASE EVENT DATE: 201412
